FAERS Safety Report 11421977 (Version 1)
Quarter: 2015Q3

REPORT INFORMATION
  Report Type: Spontaneous
  Country: US (occurrence: US)
  Receive Date: 20150827
  Receipt Date: 20150827
  Transmission Date: 20151125
  Serious: Yes (Other)
  Sender: FDA-Public Use
  Company Number: US-BEH-2015053264

PATIENT
  Sex: Female

DRUGS (1)
  1. HIZENTRA [Suspect]
     Active Substance: HUMAN IMMUNOGLOBULIN G

REACTIONS (7)
  - Red blood cell sedimentation rate increased [Unknown]
  - Dyspepsia [Unknown]
  - Inflammation [Unknown]
  - Colitis ulcerative [Unknown]
  - Haemorrhage [Unknown]
  - Unevaluable event [Unknown]
  - Weight decreased [Unknown]
